FAERS Safety Report 18848932 (Version 1)
Quarter: 2021Q1

REPORT INFORMATION
  Report Type: Spontaneous
  Country: CN (occurrence: CN)
  Receive Date: 20210205
  Receipt Date: 20210205
  Transmission Date: 20210419
  Serious: Yes (Life-Threatening)
  Sender: FDA-Public Use
  Company Number: NVSC2021CN026854

PATIENT
  Age: 74 Year
  Sex: Female
  Weight: 47 kg

DRUGS (1)
  1. ENTRESTO [Suspect]
     Active Substance: SACUBITRIL\VALSARTAN
     Indication: CARDIAC FAILURE
     Dosage: 50 MG, QD
     Route: 048
     Dates: start: 20191011, end: 20191011

REACTIONS (2)
  - Hypotension [Unknown]
  - Shock [Unknown]

NARRATIVE: CASE EVENT DATE: 20191011
